FAERS Safety Report 20174727 (Version 5)
Quarter: 2022Q1

REPORT INFORMATION
  Report Type: Other
  Country: CN (occurrence: CN)
  Receive Date: 20211213
  Receipt Date: 20220316
  Transmission Date: 20220423
  Serious: Yes (Other)
  Sender: FDA-Public Use
  Company Number: CN-002147023-NVSC2021CN275226

PATIENT
  Age: 65 Year
  Sex: Male

DRUGS (10)
  1. RANIBIZUMAB [Suspect]
     Active Substance: RANIBIZUMAB
     Indication: Neovascular age-related macular degeneration
     Dosage: 0.05 ML
     Route: 050
     Dates: start: 20190903
  2. RANIBIZUMAB [Suspect]
     Active Substance: RANIBIZUMAB
     Dosage: 0.05 ML
     Route: 050
     Dates: start: 20191008
  3. RANIBIZUMAB [Suspect]
     Active Substance: RANIBIZUMAB
     Dosage: 0.05 ML
     Route: 050
     Dates: start: 20191107
  4. RANIBIZUMAB [Suspect]
     Active Substance: RANIBIZUMAB
     Dosage: 0.05 ML
     Route: 050
     Dates: start: 20200903
  5. RANIBIZUMAB [Suspect]
     Active Substance: RANIBIZUMAB
     Dosage: PRN
     Route: 050
  6. PIRENOXINE [Concomitant]
     Active Substance: PIRENOXINE
     Indication: Cataract
     Dosage: 1 DRP
     Route: 047
     Dates: start: 20191209
  7. AMLODIPINE BESYLATE [Concomitant]
     Active Substance: AMLODIPINE BESYLATE
     Indication: Hypertension
     Dosage: 1 DOSAGE FORM
     Route: 048
     Dates: start: 2013
  8. TRIMETAZIDINE DIHYDROCHLORIDE [Concomitant]
     Active Substance: TRIMETAZIDINE DIHYDROCHLORIDE
     Indication: Chest discomfort
     Dosage: 1 DOSAGE FORM
     Route: 048
     Dates: start: 2011
  9. CLOPIDOGREL BISULFATE [Concomitant]
     Active Substance: CLOPIDOGREL BISULFATE
     Indication: Chest discomfort
     Dosage: 0.5 DOSAGE FORM
     Route: 048
     Dates: start: 2011
  10. ATORVASTATIN CALCIUM [Concomitant]
     Active Substance: ATORVASTATIN CALCIUM
     Indication: Chest discomfort
     Dosage: 1 DOSAGE FORM
     Route: 048
     Dates: start: 2011

REACTIONS (2)
  - Retinal haemorrhage [Recovered/Resolved]
  - Noninfective conjunctivitis [Recovered/Resolved]

NARRATIVE: CASE EVENT DATE: 20191009
